FAERS Safety Report 12254458 (Version 3)
Quarter: 2016Q3

REPORT INFORMATION
  Report Type: Spontaneous
  Country: DE (occurrence: DE)
  Receive Date: 20160411
  Receipt Date: 20160729
  Transmission Date: 20161109
  Serious: Yes (Disabling)
  Sender: FDA-Public Use
  Company Number: DE-MYLANLABS-2016M1014001

PATIENT

DRUGS (3)
  1. FLUOMIZIN [Suspect]
     Active Substance: DEQUALINIUM CHLORIDE
     Dosage: UNK
     Route: 064
     Dates: start: 201509
  2. CITALOPRAM MYLAN [Suspect]
     Active Substance: CITALOPRAM HYDROBROMIDE
     Indication: OBSESSIVE-COMPULSIVE DISORDER
     Dosage: 40 MG, UNK
     Route: 064
     Dates: end: 20160203
  3. AMPICILLIN                         /00000502/ [Suspect]
     Active Substance: AMPICILLIN
     Dosage: UNK
     Dates: start: 201509

REACTIONS (2)
  - Maternal exposure during pregnancy [Unknown]
  - Ventricular septal defect [Unknown]

NARRATIVE: CASE EVENT DATE: 20160203
